FAERS Safety Report 17257890 (Version 1)
Quarter: 2020Q1

REPORT INFORMATION
  Report Type: Spontaneous
  Country: US (occurrence: US)
  Receive Date: 20200110
  Receipt Date: 20200110
  Transmission Date: 20200409
  Serious: No
  Sender: FDA-Public Use
  Company Number: US-PERRIGO-19US013758

PATIENT
  Age: 1 Year
  Sex: Female
  Weight: 13.61 kg

DRUGS (4)
  1. IBUPROFEN. [Suspect]
     Active Substance: IBUPROFEN
     Indication: PYREXIA
     Dosage: 75 MG, Q8H
     Route: 048
     Dates: start: 20191104, end: 20191104
  2. TYLENOL [Concomitant]
     Active Substance: ACETAMINOPHEN
     Indication: PYREXIA
     Dosage: UNK
     Route: 065
     Dates: start: 20191104, end: 20191105
  3. TYLENOL [Concomitant]
     Active Substance: ACETAMINOPHEN
     Indication: PAIN
  4. IBUPROFEN. [Suspect]
     Active Substance: IBUPROFEN
     Indication: ORAL PAIN
     Dosage: 75 MG, SINGLE
     Route: 048
     Dates: start: 20191105, end: 20191105

REACTIONS (1)
  - Throat irritation [Recovered/Resolved]

NARRATIVE: CASE EVENT DATE: 20191105
